FAERS Safety Report 14553001 (Version 1)
Quarter: 2018Q1

REPORT INFORMATION
  Report Type: Spontaneous
  Country: RU (occurrence: RU)
  Receive Date: 20180220
  Receipt Date: 20180220
  Transmission Date: 20180509
  Serious: Yes (Hospitalization)
  Sender: FDA-Public Use
  Company Number: RU-ASTRAZENECA-2018SE19001

PATIENT
  Age: 77 Year
  Sex: Male
  Weight: 72 kg

DRUGS (8)
  1. BRILINTA [Suspect]
     Active Substance: TICAGRELOR
     Indication: MYOCARDIAL INFARCTION
     Route: 048
     Dates: start: 201703
  2. THROMBO ASS [Concomitant]
     Active Substance: ASPIRIN
  3. CONCOR [Concomitant]
     Active Substance: BISOPROLOL FUMARATE
  4. LIPRIMAR [Concomitant]
     Active Substance: ATORVASTATIN CALCIUM
  5. ULTOP [Concomitant]
  6. FERRO-FOLGAMMA [Concomitant]
  7. NOLPAZA [Concomitant]
     Active Substance: PANTOPRAZOLE SODIUM
  8. PRESTARIUM [Concomitant]
     Active Substance: PERINDOPRIL

REACTIONS (4)
  - Angina pectoris [Unknown]
  - Haemoglobin decreased [Unknown]
  - Diarrhoea [Recovered/Resolved]
  - Gastric ulcer [Unknown]

NARRATIVE: CASE EVENT DATE: 20180201
